FAERS Safety Report 7472009-5 (Version None)
Quarter: 2011Q2

REPORT INFORMATION
  Report Type: 
  Country: None (occurrence: None)
  Receive Date: 20110511
  Receipt Date: 20100922
  Transmission Date: 20111010
  Serious: No
  Sender: FDA-Public Use
  Company Number: A0882643A

PATIENT
  Age: 48 Year
  Sex: Female

DRUGS (8)
  1. IMODIUM [Concomitant]
  2. TYKERB [Suspect]
     Indication: BREAST CANCER
     Dosage: 1250MG PER DAY
     Route: 048
     Dates: start: 20100701
  3. VITAMIN B6 [Concomitant]
  4. XANAX [Concomitant]
  5. EFFEXOR [Concomitant]
  6. OMEPRAZOLE [Concomitant]
  7. XELODA [Concomitant]
  8. LYRICA [Concomitant]

REACTIONS (5)
  - DIARRHOEA [None]
  - WEIGHT DECREASED [None]
  - HEADACHE [None]
  - VOMITING [None]
  - RASH [None]
